FAERS Safety Report 4895652-6 (Version None)
Quarter: 2006Q1

REPORT INFORMATION
  Report Type: 
  Country: None (occurrence: None)
  Receive Date: 20060125
  Receipt Date: 20060118
  Transmission Date: 20060701
  Serious: Yes (Hospitalization)
  Sender: FDA-Public Use
  Company Number: US-YAMANOUCHI-YPA20050620

PATIENT
  Age: 84 Year
  Sex: Male
  Weight: 74.8435 kg

DRUGS (5)
  1. VESICARE [Suspect]
     Indication: NOCTURIA
     Dosage: 5 MG QD PO
     Route: 048
     Dates: start: 20051101, end: 20051202
  2. VESICARE [Suspect]
     Indication: NOCTURIA
  3. REMINYL [Concomitant]
  4. TOPROL-XL [Concomitant]
  5. LIPITOR [Concomitant]

REACTIONS (4)
  - AGITATION [None]
  - CONFUSIONAL STATE [None]
  - HALLUCINATION [None]
  - SPEECH DISORDER [None]
